FAERS Safety Report 9207238 (Version 2)
Quarter: 2014Q1

REPORT INFORMATION
  Report Type: Spontaneous
  Country: US (occurrence: US)
  Receive Date: 20130403
  Receipt Date: 20140129
  Transmission Date: 20141002
  Serious: Yes (Other)
  Sender: FDA-Public Use
  Company Number: US-BAYER-2013-039681

PATIENT
  Age: 21 Year
  Sex: Female

DRUGS (10)
  1. YAZ [Suspect]
     Dosage: UNK
     Dates: start: 2008, end: 2012
  2. CIPROFLOXACIN [Concomitant]
     Dosage: 500 MG, UNK
     Route: 048
     Dates: start: 20120117
  3. OXYCODONE/APAP [Concomitant]
     Dosage: 5-325 MG
     Route: 048
     Dates: start: 20120120
  4. IBUPROFEN [Concomitant]
     Route: 048
  5. MACROBID [Concomitant]
     Route: 048
  6. NAPROSYN [Concomitant]
     Route: 048
  7. ZOFRAN [Concomitant]
     Route: 048
  8. ROCEPHIN [Concomitant]
     Indication: MONONUCLEOSIS SYNDROME
  9. ZYRTEC [Concomitant]
     Route: 048
  10. NASONEX [Concomitant]
     Route: 045

REACTIONS (5)
  - Gallbladder disorder [None]
  - Cholecystitis [None]
  - Injury [None]
  - Pain [None]
  - Emotional distress [None]
